FAERS Safety Report 4975724-8 (Version None)
Quarter: 2006Q2

REPORT INFORMATION
  Report Type: 
  Country: None (occurrence: None)
  Receive Date: 20060411
  Receipt Date: 20060329
  Transmission Date: 20061013
  Serious: Yes (Other)
  Sender: FDA-Public Use
  Company Number: 2006043417

PATIENT
  Sex: Male

DRUGS (1)
  1. CAVERJECT [Suspect]
     Indication: ILL-DEFINED DISORDER

REACTIONS (4)
  - BLOODY DISCHARGE [None]
  - PAIN [None]
  - PENILE DISCHARGE [None]
  - PROSTATE CANCER [None]
